FAERS Safety Report 21075377 (Version 1)
Quarter: 2022Q3

REPORT INFORMATION
  Report Type: Spontaneous
  Country: CN (occurrence: CN)
  Receive Date: 20220713
  Receipt Date: 20220713
  Transmission Date: 20221026
  Serious: Yes (Other)
  Sender: FDA-Public Use
  Company Number: None

PATIENT
  Age: 33 Year
  Sex: Female
  Weight: 54 kg

DRUGS (7)
  1. CYCLOPHOSPHAMIDE [Suspect]
     Active Substance: CYCLOPHOSPHAMIDE
     Indication: Breast cancer female
     Dosage: 780 MG, QD, ROUTE- INTRAVENOUS INJECTION, CYCLOPHOSPHAMIDE (780 MG) + SODIUM CHLORIDE (40ML)
     Route: 042
     Dates: start: 20220402, end: 20220402
  2. SODIUM CHLORIDE [Suspect]
     Active Substance: SODIUM CHLORIDE
     Indication: Medication dilution
     Dosage: 40 ML, QD,  ROUTE- INTRAVENOUS INJECTION, CYCLOPHOSPHAMIDE (780 MG) + SODIUM CHLORIDE (40ML)
     Route: 042
     Dates: start: 20220402, end: 20220402
  3. SODIUM CHLORIDE [Suspect]
     Active Substance: SODIUM CHLORIDE
     Dosage: 100 ML, QD, EPIRUBICIN HYDROCHLORIDE(110MG) + SODIUM CHLORIDE(100ML)
     Route: 041
     Dates: start: 20220402, end: 20220402
  4. SODIUM CHLORIDE [Suspect]
     Active Substance: SODIUM CHLORIDE
     Dosage: 250 ML, QD, DOCETAXEL INJECTION (110 MG) + SODIUM CHLORIDE(250ML).
     Route: 041
     Dates: start: 20220402, end: 20220402
  5. DOCETAXEL [Suspect]
     Active Substance: DOCETAXEL
     Indication: Breast cancer female
     Dosage: 110 MG, QD, DOCETAXEL INJECTION (110 MG) + SODIUM CHLORIDE(250ML).
     Route: 041
     Dates: start: 20220402, end: 20220402
  6. EPIRUBICIN HYDROCHLORIDE [Suspect]
     Active Substance: EPIRUBICIN HYDROCHLORIDE
     Indication: Breast cancer female
     Dosage: 110 MG, QD, EPIRUBICIN HYDROCHLORIDE(110MG) + SODIUM CHLORIDE(100ML)
     Route: 041
     Dates: start: 20220402, end: 20220402
  7. Jin you li [Concomitant]
     Indication: Product used for unknown indication
     Dosage: 6 MG
     Route: 058
     Dates: start: 202204

REACTIONS (2)
  - White blood cell count decreased [Not Recovered/Not Resolved]
  - Agranulocytosis [Not Recovered/Not Resolved]

NARRATIVE: CASE EVENT DATE: 20220407
